FAERS Safety Report 14102287 (Version 2)
Quarter: 2021Q4

REPORT INFORMATION
  Report Type: Report from Study
  Country: US (occurrence: US)
  Receive Date: 20171018
  Receipt Date: 20211008
  Transmission Date: 20220304
  Serious: Yes (Hospitalization)
  Sender: FDA-Public Use
  Company Number: US-BRISTOL-MYERS SQUIBB COMPANY-BMS-2017-093247

PATIENT
  Age: 60 Year
  Sex: Female
  Weight: 51.4 kg

DRUGS (3)
  1. NIVOLUMAB [Suspect]
     Active Substance: NIVOLUMAB
     Indication: Ovarian epithelial cancer
     Dosage: 3 MG/KG, Q2WK
     Route: 042
     Dates: start: 20150721
  2. NIVOLUMAB [Suspect]
     Active Substance: NIVOLUMAB
     Dosage: 154.2 MG, UNK
     Route: 065
     Dates: start: 20170901
  3. IPILIMUMAB [Suspect]
     Active Substance: IPILIMUMAB
     Indication: Ovarian epithelial cancer
     Dosage: 51.4 MG, UNK
     Route: 065
     Dates: end: 20170901

REACTIONS (2)
  - Dyspnoea [Recovered/Resolved]
  - Pleural effusion [Unknown]

NARRATIVE: CASE EVENT DATE: 20170911
